FAERS Safety Report 5208696-1 (Version None)
Quarter: 2007Q1

REPORT INFORMATION
  Report Type: 
  Country: None (occurrence: None)
  Receive Date: 20070116
  Receipt Date: 20070105
  Transmission Date: 20070707
  Serious: Yes (Hospitalization)
  Sender: FDA-Public Use
  Company Number: PHRM2007FR00463

PATIENT
  Age: 63 Year
  Sex: Female

DRUGS (2)
  1. AREDIA [Suspect]
     Indication: METASTASES TO BONE
     Dates: start: 20031001, end: 20041001
  2. LYTOS [Concomitant]

REACTIONS (2)
  - ABSCESS MANAGEMENT [None]
  - OSTEONECROSIS [None]
